FAERS Safety Report 16839588 (Version 2)
Quarter: 2019Q4

REPORT INFORMATION
  Report Type: Spontaneous
  Country: US (occurrence: US)
  Receive Date: 20190923
  Receipt Date: 20191030
  Transmission Date: 20200122
  Serious: No
  Sender: FDA-Public Use
  Company Number: US-PFIZER INC-2019407058

PATIENT
  Age: 77 Year
  Sex: Female
  Weight: 61.23 kg

DRUGS (1)
  1. LYRICA [Suspect]
     Active Substance: PREGABALIN
     Indication: NEUROPATHY PERIPHERAL
     Dosage: 75 MG, 3X/DAY

REACTIONS (3)
  - Tendon injury [Unknown]
  - Visual impairment [Unknown]
  - Expired product administered [Unknown]
